FAERS Safety Report 25340601 (Version 1)
Quarter: 2025Q2

REPORT INFORMATION
  Report Type: Spontaneous
  Country: CN (occurrence: CN)
  Receive Date: 20250521
  Receipt Date: 20250521
  Transmission Date: 20250716
  Serious: Yes (Other)
  Sender: SANOFI AVENTIS
  Company Number: CN-SA-2025SA139952

PATIENT
  Age: 68 Year
  Sex: Male
  Weight: 75 kg

DRUGS (4)
  1. INSULIN GLARGINE\LIXISENATIDE [Suspect]
     Active Substance: INSULIN GLARGINE\LIXISENATIDE
     Indication: Blood glucose increased
     Dosage: 22 U, QD
     Route: 058
     Dates: start: 20250506, end: 20250506
  2. METFORMIN [Concomitant]
     Active Substance: METFORMIN HYDROCHLORIDE
     Dates: start: 20250506
  3. ACARBOSE [Concomitant]
     Active Substance: ACARBOSE
     Dates: start: 20250506
  4. DAPAGLIFLOZIN [Concomitant]
     Active Substance: DAPAGLIFLOZIN
     Dates: start: 20250506

REACTIONS (13)
  - Electrocardiogram ST segment depression [Recovering/Resolving]
  - Unresponsive to stimuli [Recovering/Resolving]
  - Aphasia [Recovering/Resolving]
  - Peripheral coldness [Recovering/Resolving]
  - Limb discomfort [Recovering/Resolving]
  - Pain in extremity [Recovering/Resolving]
  - Blood pressure increased [Recovering/Resolving]
  - Palpitations [Recovering/Resolving]
  - Abdominal discomfort [Recovering/Resolving]
  - Drug intolerance [Unknown]
  - Nausea [Recovering/Resolving]
  - Vomiting [Recovering/Resolving]
  - Blood glucose decreased [Recovered/Resolved]

NARRATIVE: CASE EVENT DATE: 20250506
